FAERS Safety Report 9238413 (Version 2)
Quarter: 2013Q2

REPORT INFORMATION
  Report Type: Spontaneous
  Country: US (occurrence: US)
  Receive Date: 20130418
  Receipt Date: 20130503
  Transmission Date: 20140414
  Serious: Yes (Hospitalization)
  Sender: FDA-Public Use
  Company Number: US-JNJFOC-20130405662

PATIENT
  Age: 81 Year
  Sex: Male
  Weight: 78.93 kg

DRUGS (16)
  1. XARELTO [Suspect]
     Indication: CEREBROVASCULAR ACCIDENT PROPHYLAXIS
     Route: 048
     Dates: start: 201211, end: 20130328
  2. XARELTO [Suspect]
     Indication: CEREBROVASCULAR ACCIDENT PROPHYLAXIS
     Route: 048
     Dates: start: 20130415
  3. XARELTO [Suspect]
     Indication: CEREBROVASCULAR ACCIDENT PROPHYLAXIS
     Route: 048
     Dates: start: 20130401, end: 20130409
  4. XARELTO [Suspect]
     Indication: ATRIAL FLUTTER
     Route: 048
     Dates: start: 20130415
  5. XARELTO [Suspect]
     Indication: ATRIAL FLUTTER
     Route: 048
     Dates: start: 201211, end: 20130328
  6. XARELTO [Suspect]
     Indication: ATRIAL FLUTTER
     Route: 048
     Dates: start: 20130401, end: 20130409
  7. XARELTO [Suspect]
     Indication: ATRIAL FIBRILLATION
     Route: 048
     Dates: start: 20130401, end: 20130409
  8. XARELTO [Suspect]
     Indication: ATRIAL FIBRILLATION
     Route: 048
     Dates: start: 201211, end: 20130328
  9. XARELTO [Suspect]
     Indication: ATRIAL FIBRILLATION
     Route: 048
     Dates: start: 20130415
  10. ASPIRIN [Suspect]
     Indication: STENT PLACEMENT
     Route: 065
     Dates: start: 2006
  11. ASPIRIN [Suspect]
     Indication: ATRIAL FLUTTER
     Route: 065
     Dates: start: 2006
  12. METOPROLOL TARTRATE [Concomitant]
     Route: 065
  13. RAMIPRIL [Concomitant]
     Route: 065
  14. RANITIDINE [Concomitant]
     Indication: GASTRIC DISORDER
     Route: 065
  15. METFORMIN [Concomitant]
     Route: 065
  16. SIMVASTATIN [Concomitant]
     Route: 065

REACTIONS (4)
  - Post procedural haemorrhage [Recovering/Resolving]
  - Procedural haemorrhage [Recovering/Resolving]
  - Dehydration [Recovering/Resolving]
  - Haemoglobin decreased [Recovering/Resolving]
